FAERS Safety Report 5554895-9 (Version None)
Quarter: 2007Q4

REPORT INFORMATION
  Report Type: 
  Country: None (occurrence: None)
  Receive Date: 20071213
  Receipt Date: 20071206
  Transmission Date: 20080405
  Serious: Yes (Hospitalization)
  Sender: FDA-Public Use
  Company Number: US-GENENTECH-252429

PATIENT
  Sex: Female
  Weight: 87.528 kg

DRUGS (19)
  1. HERCEPTIN [Suspect]
     Indication: BREAST CANCER METASTATIC
     Dates: start: 20070801
  2. PROCRIT [Suspect]
     Indication: ANAEMIA
     Dosage: 120000 IU, Q3W
     Route: 058
     Dates: start: 20071024
  3. ABRAXANE [Concomitant]
     Indication: BREAST CANCER METASTATIC
     Dates: start: 20070801
  4. GEMCITABINE HCL [Concomitant]
     Indication: BREAST CANCER METASTATIC
  5. NOVOLIN 50/50 [Concomitant]
     Indication: DRUG USE FOR UNKNOWN INDICATION
     Dosage: 70/30
     Route: 058
     Dates: start: 20061018
  6. ARIMIDEX [Concomitant]
     Indication: DRUG USE FOR UNKNOWN INDICATION
     Dosage: 1 MG, QD
     Dates: start: 20050301
  7. SPIRIVA [Concomitant]
     Indication: DRUG USE FOR UNKNOWN INDICATION
     Dosage: 1 UNK, PRN
     Dates: start: 20051101
  8. ZOMETA [Concomitant]
     Indication: DRUG USE FOR UNKNOWN INDICATION
     Dosage: 3 MG, UNK
     Route: 042
     Dates: start: 20060412
  9. ADVAIR DISKUS 100/50 [Concomitant]
     Indication: DRUG USE FOR UNKNOWN INDICATION
     Dosage: 2 PUFF, QD
     Dates: start: 20061101
  10. AMITRIPTLINE HCL [Concomitant]
     Indication: DRUG USE FOR UNKNOWN INDICATION
     Dosage: 25 MG, QD
     Route: 048
     Dates: start: 20051101
  11. DUONEB [Concomitant]
     Indication: DRUG USE FOR UNKNOWN INDICATION
     Dosage: 2.5 MG, QID
     Dates: start: 20051001
  12. METFORMIN HYDROCHLORIDE [Concomitant]
     Indication: DRUG USE FOR UNKNOWN INDICATION
     Dosage: 500 MG, QD
     Dates: start: 20061001
  13. GLYBURIDE [Concomitant]
     Indication: DRUG USE FOR UNKNOWN INDICATION
     Dosage: 5 MG, BID
     Route: 048
     Dates: start: 20061001
  14. REMERON [Concomitant]
     Indication: DRUG USE FOR UNKNOWN INDICATION
     Dosage: 15 MG, QD
     Route: 048
     Dates: start: 20051101
  15. TOPROL-XL [Concomitant]
     Indication: DRUG USE FOR UNKNOWN INDICATION
     Dosage: 25 MG, QD
     Route: 048
     Dates: start: 19950101
  16. ATIVAN [Concomitant]
     Indication: DRUG USE FOR UNKNOWN INDICATION
     Dosage: 0.5 MG, QD
     Route: 048
     Dates: start: 20051001
  17. PROTONIX [Concomitant]
     Indication: DRUG USE FOR UNKNOWN INDICATION
     Dosage: 40 MG, QD
     Route: 048
     Dates: start: 20051101
  18. ANZEMET [Concomitant]
     Indication: DRUG USE FOR UNKNOWN INDICATION
     Dosage: 160 MG, PRN
     Route: 042
     Dates: start: 20070703
  19. GLUCAGON [Concomitant]
     Indication: DRUG USE FOR UNKNOWN INDICATION
     Dosage: 1 MG, PRN
     Route: 030
     Dates: start: 20061001

REACTIONS (1)
  - PNEUMONIA [None]
